FAERS Safety Report 15744134 (Version 1)
Quarter: 2018Q4

REPORT INFORMATION
  Report Type: Spontaneous
  Country: GB (occurrence: GB)
  Receive Date: 20181220
  Receipt Date: 20181220
  Transmission Date: 20190205
  Serious: Yes (Other)
  Sender: FDA-Public Use
  Company Number: GB-TEVA-2018-GB-990211

PATIENT
  Sex: Male

DRUGS (1)
  1. TEVA LAMOTRIGINE 25MG TABLETS [Suspect]
     Active Substance: LAMOTRIGINE
     Dosage: 8 DOSAGE FORMS DAILY; 1 DOSAGE FORM = 1 TABLET
     Route: 065

REACTIONS (2)
  - Anxiety [Unknown]
  - Epilepsy [Unknown]
